FAERS Safety Report 7648175-5 (Version None)
Quarter: 2011Q3

REPORT INFORMATION
  Report Type: 
  Country: None (occurrence: None)
  Receive Date: 20110801
  Receipt Date: 20110721
  Transmission Date: 20111222
  Serious: Yes (Hospitalization)
  Sender: FDA-Public Use
  Company Number: CN-ASTRAZENECA-2011SE37138

PATIENT
  Age: 61 Year
  Sex: Male

DRUGS (7)
  1. ASPIRIN [Concomitant]
  2. HYZAAR [Concomitant]
  3. BROMOCRIPTINE MESYLATE [Concomitant]
  4. NORVASC [Concomitant]
  5. CRESTOR [Suspect]
     Indication: HYPERLIPIDAEMIA
     Route: 048
     Dates: start: 20100320, end: 20110605
  6. AMARYL [Concomitant]
  7. ASPIRIN [Concomitant]
     Dosage: 01 QN

REACTIONS (2)
  - PULMONARY TUBERCULOSIS [None]
  - LUNG ABSCESS [None]
